FAERS Safety Report 6587676-8 (Version None)
Quarter: 2010Q1

REPORT INFORMATION
  Report Type: 
  Country: None (occurrence: None)
  Receive Date: 20100217
  Receipt Date: 20100217
  Transmission Date: 20100710
  Serious: Yes (Other)
  Sender: FDA-Public Use
  Company Number: None

PATIENT
  Age: 6 Year
  Sex: Male
  Weight: 23.587 kg

DRUGS (1)
  1. ATROPINE [Suspect]
     Indication: AMBLYOPIA
     Dosage: 1 DROP DAILY OPTHALMIC
     Route: 047
     Dates: start: 20091202, end: 20100111

REACTIONS (1)
  - HALLUCINATION [None]
